FAERS Safety Report 9906999 (Version 4)
Quarter: 2014Q2

REPORT INFORMATION
  Report Type: Spontaneous
  Country: US (occurrence: US)
  Receive Date: 20140218
  Receipt Date: 20140422
  Transmission Date: 20141212
  Serious: No
  Sender: FDA-Public Use
  Company Number: US-009507513-1402USA006382

PATIENT
  Age: 54 Year
  Sex: Female

DRUGS (2)
  1. ASMANEX TWISTHALER [Suspect]
     Indication: RESPIRATORY TRACT INFLAMMATION
     Dosage: 1 DF, QD
     Route: 055
     Dates: start: 20140210
  2. ASMANEX TWISTHALER [Suspect]
     Indication: DYSPNOEA
     Dosage: EVERY THREE DAYS
     Route: 055
     Dates: start: 2014

REACTIONS (9)
  - Tremor [Not Recovered/Not Resolved]
  - Therapeutic response changed [Unknown]
  - Vulvovaginal mycotic infection [Recovering/Resolving]
  - Product quality issue [Unknown]
  - Underdose [Unknown]
  - Toothache [Unknown]
  - Drug prescribing error [Unknown]
  - Drug ineffective for unapproved indication [Unknown]
  - Off label use [Unknown]
